FAERS Safety Report 9394162 (Version 1)
Quarter: 2013Q3

REPORT INFORMATION
  Report Type: Report from Study
  Country: AU (occurrence: AU)
  Receive Date: 20130710
  Receipt Date: 20130710
  Transmission Date: 20140515
  Serious: Yes (Other)
  Sender: FDA-Public Use
  Company Number: PHHY2012AU128785

PATIENT
  Sex: Female

DRUGS (2)
  1. EXJADE [Suspect]
     Indication: MYELODYSPLASTIC SYNDROME
     Dosage: 1000 MG, UNK
     Dates: start: 20100901
  2. PREDNISONE [Suspect]
     Dosage: UNK UKN, UNK

REACTIONS (2)
  - Osteoporosis [Unknown]
  - Cataract [Unknown]
